FAERS Safety Report 22221836 (Version 1)
Quarter: 2023Q2

REPORT INFORMATION
  Report Type: Spontaneous
  Country: CN (occurrence: CN)
  Receive Date: 20230418
  Receipt Date: 20230418
  Transmission Date: 20230722
  Serious: Yes (Hospitalization, Other)
  Sender: FDA-Public Use
  Company Number: None

PATIENT
  Age: 4 Year
  Sex: Male
  Weight: 19.6 kg

DRUGS (8)
  1. CYCLOPHOSPHAMIDE [Suspect]
     Active Substance: CYCLOPHOSPHAMIDE
     Indication: Retroperitoneal cancer
     Dosage: 0.97 G, QD, DILUTED WITH (4:1)GLUCOSE SODIUM CHLORIDE 250 ML
     Route: 041
     Dates: start: 20230224, end: 20230224
  2. SODIUM CHLORIDE [Suspect]
     Active Substance: SODIUM CHLORIDE
     Indication: Medication dilution
     Dosage: 250 ML, QD, STRENGTH: 0.9%, DOSAGE FORM: INJECTION, USED TO DILUTE CISPLATIN 72MG
     Route: 041
     Dates: start: 20230225, end: 20230225
  3. SODIUM CHLORIDE [Suspect]
     Active Substance: SODIUM CHLORIDE
     Dosage: 250 ML, QD, STRENGTH: 0.9%, DOSAGE FORM: INJECTION, USED TO DILUTE EPIRUBICIN HYDROCHLORIDE 24MG
     Route: 041
     Dates: start: 20230226, end: 20230226
  4. SODIUM CHLORIDE [Suspect]
     Active Substance: SODIUM CHLORIDE
     Dosage: 50 ML, QD, STRENGTH: 0.9%, DOSAGE FORM: INJECTION, USED TO DILUTE VINDESINE SULFATE 2.4MG
     Route: 041
     Dates: start: 20230224, end: 20230224
  5. DEXTROSE\SODIUM CHLORIDE [Suspect]
     Active Substance: DEXTROSE\SODIUM CHLORIDE
     Indication: Medication dilution
     Dosage: 250 ML, QD, STRENGTH: 0.9%, DOSAGE FORM: INJECTION, USED TO DILUTE CYCLOPHOSPHAMIDE 0.97G
     Route: 041
     Dates: start: 20230224, end: 20230224
  6. EPIRUBICIN [Suspect]
     Active Substance: EPIRUBICIN
     Indication: Retroperitoneal cancer
     Dosage: 24 MG, QD, DILUTED WITH 0.9% SODIUM CHLORIDE 250 ML
     Route: 041
     Dates: start: 20230226, end: 20230226
  7. VINDESINE SULFATE [Suspect]
     Active Substance: VINDESINE SULFATE
     Indication: Retroperitoneal cancer
     Dosage: 2.4 MG, QD, DILUTED WITH 0.9% SODIUM CHLORIDE 50 ML
     Route: 041
     Dates: start: 20230224, end: 20230224
  8. CISPLATIN [Suspect]
     Active Substance: CISPLATIN
     Indication: Retroperitoneal cancer
     Dosage: 72 MG, QD, DILUTED WITH 0.9% SODIUM CHLORIDE 250 ML
     Route: 041
     Dates: start: 20230225, end: 20230225

REACTIONS (1)
  - Myelosuppression [Recovering/Resolving]

NARRATIVE: CASE EVENT DATE: 20230306
